FAERS Safety Report 7115977-3 (Version None)
Quarter: 2010Q4

REPORT INFORMATION
  Report Type: 
  Country: None (occurrence: None)
  Receive Date: 20101122
  Receipt Date: 20101117
  Transmission Date: 20110411
  Serious: Yes (Other)
  Sender: FDA-Public Use
  Company Number: NL-BAYER-201034625GPV

PATIENT
  Age: 37 Year
  Sex: Female

DRUGS (1)
  1. YAZ [Suspect]
     Indication: ENDOMETRIOSIS
     Dosage: ONE TABLET ORALLY FOR CONTINUES USE, WITHOUT FOUR DAYS STOP
     Route: 048
     Dates: start: 20081201, end: 20100125

REACTIONS (6)
  - ARRHYTHMIA [None]
  - CIRCULATORY COLLAPSE [None]
  - DIZZINESS [None]
  - MALAISE [None]
  - PALPITATIONS [None]
  - THROMBOSIS [None]
